FAERS Safety Report 6683272-2 (Version None)
Quarter: 2010Q2

REPORT INFORMATION
  Report Type: 
  Country: None (occurrence: None)
  Receive Date: 20100415
  Receipt Date: 20100406
  Transmission Date: 20101027
  Serious: Yes (Hospitalization)
  Sender: FDA-Public Use
  Company Number: US-JNJFOC-20100304710

PATIENT
  Sex: Male
  Weight: 99.79 kg

DRUGS (5)
  1. DURAGESIC-100 [Suspect]
     Indication: BACK PAIN
     Route: 062
  2. DURAGESIC-100 [Suspect]
     Route: 062
  3. PROTONIX [Concomitant]
     Indication: ABDOMINAL PAIN UPPER
     Route: 048
  4. NORCO [Concomitant]
     Indication: BREAKTHROUGH PAIN
     Route: 048
  5. CELEBREX [Concomitant]
     Indication: ANTIINFLAMMATORY THERAPY
     Route: 048

REACTIONS (5)
  - ARTHRITIS [None]
  - ASTHMA [None]
  - DRUG INEFFECTIVE [None]
  - PAIN [None]
  - SEXUAL DYSFUNCTION [None]
